FAERS Safety Report 8469611-0 (Version None)
Quarter: 2012Q2

REPORT INFORMATION
  Report Type: 
  Country: None (occurrence: None)
  Receive Date: 20120626
  Receipt Date: 20120618
  Transmission Date: 20120825
  Serious: Yes (Hospitalization)
  Sender: FDA-Public Use
  Company Number: IT-PFIZER INC-2012125584

PATIENT
  Age: 75 Year
  Sex: Female

DRUGS (13)
  1. TORASEMIDE [Concomitant]
  2. LANTUS [Concomitant]
  3. ALLOPURINOL [Concomitant]
  4. DAFLON [Concomitant]
  5. RAMIPRIL [Suspect]
     Indication: HYPERTENSION
     Dosage: 5 MG, 1X/DAY
     Route: 048
     Dates: start: 20020101, end: 20120509
  6. PANTOPRAZOLE SODIUM [Concomitant]
  7. KANRENOL [Suspect]
     Indication: CARDIAC FAILURE
     Dosage: 50 MG, 1X/DAY
     Route: 048
     Dates: start: 20110101, end: 20120509
  8. SIMVASTATIN [Concomitant]
  9. WALIX [Concomitant]
  10. CLOPIDOGREL [Concomitant]
  11. METOPROLOL TARTRATE [Concomitant]
  12. HUMALOG [Concomitant]
  13. ASPIRIN [Concomitant]

REACTIONS (4)
  - ASTHENIA [None]
  - HYPERKALAEMIA [None]
  - ATRIOVENTRICULAR BLOCK COMPLETE [None]
  - HYPOTENSION [None]
